FAERS Safety Report 23153218 (Version 1)
Quarter: 2023Q4

REPORT INFORMATION
  Report Type: Spontaneous
  Country: DE (occurrence: None)
  Receive Date: 20231107
  Receipt Date: 20231107
  Transmission Date: 20240110
  Serious: Yes (Other)
  Sender: FDA-Public Use
  Company Number: 2023A249635

PATIENT
  Age: 70 Year
  Sex: Male
  Weight: 84 kg

DRUGS (2)
  1. ROSUVASTATIN [Suspect]
     Active Substance: ROSUVASTATIN
     Indication: Hypercholesterolaemia
     Dosage: 40 MILLIGRAM, 1/DAY
     Route: 048
     Dates: start: 202309, end: 20231022
  2. ROSUVASTATIN [Suspect]
     Active Substance: ROSUVASTATIN
     Indication: Coronary artery disease
     Dosage: 40 MILLIGRAM, 1/DAY
     Route: 048
     Dates: start: 202309, end: 20231022

REACTIONS (3)
  - Rhabdomyolysis [Not Recovered/Not Resolved]
  - Crush syndrome [Not Recovered/Not Resolved]
  - Acute kidney injury [Not Recovered/Not Resolved]

NARRATIVE: CASE EVENT DATE: 20231023
